FAERS Safety Report 10020869 (Version 2)
Quarter: 2014Q1

REPORT INFORMATION
  Report Type: Spontaneous
  Country: FR (occurrence: None)
  Receive Date: 20140313
  Receipt Date: 20140314
  Transmission Date: 20141002
  Serious: Yes (Death, Hospitalization)
  Sender: FDA-Public Use
  Company Number: 2014030028

PATIENT
  Age: 0 Day
  Sex: 0

DRUGS (6)
  1. COLOFOAM [Suspect]
     Route: 064
     Dates: start: 20090625
  2. REMICADE (INFLIXIMAB) [Suspect]
     Route: 064
     Dates: start: 20090813, end: 20090827
  3. SOLUPRED (PREDNISOLONE SODIUM SULFOBENZOATE) [Suspect]
     Route: 064
     Dates: start: 20090625
  4. FIVASA [Suspect]
     Route: 064
     Dates: start: 20090625
  5. INEXIUM [Suspect]
     Route: 064
     Dates: start: 20090625
  6. OROCAL [Suspect]
     Route: 064
     Dates: start: 20090625

REACTIONS (3)
  - Maternal drugs affecting foetus [None]
  - Listeriosis [None]
  - Premature baby [None]
